FAERS Safety Report 22117784 (Version 1)
Quarter: 2023Q1

REPORT INFORMATION
  Report Type: Other
  Country: IT (occurrence: IT)
  Receive Date: 20230321
  Receipt Date: 20230321
  Transmission Date: 20230417
  Serious: Yes (Other)
  Sender: FDA-Public Use
  Company Number: IT-CELLTRION INC.-2023IT005682

PATIENT

DRUGS (9)
  1. RITUXIMAB [Suspect]
     Active Substance: RITUXIMAB
     Indication: Lymphoma transformation
     Dosage: UNK
     Dates: start: 20210802, end: 20210808
  2. RITUXIMAB [Suspect]
     Active Substance: RITUXIMAB
     Dosage: 2ND LINE SYSTEMIC TREATMENT, R-MINI IEV +AUTO SCT (BEAM)
     Dates: start: 20100812, end: 20101226
  3. RITUXIMAB [Suspect]
     Active Substance: RITUXIMAB
     Dosage: 3RD LINE SYSTEMIC TREATMENT, R-BENDA
     Dates: start: 20120130, end: 20120412
  4. RITUXIMAB [Suspect]
     Active Substance: RITUXIMAB
     Dosage: 1ST LINE SYSTEMIC TREATMENT, R-FN + ZEVALLIN
     Dates: start: 20080421, end: 20081009
  5. EPIRUBICIN [Suspect]
     Active Substance: EPIRUBICIN
     Indication: Lymphoma transformation
     Dosage: 2ND LINE SYSTEMIC TREATMENT, R-MINI IEV +AUTO SCT (BEAM)
     Dates: start: 20100812, end: 20101226
  6. LENALIDOMIDE [Suspect]
     Active Substance: LENALIDOMIDE
     Indication: Lymphoma transformation
     Dosage: 4TH LINE SYSTEMIC TREATMENT, R-LENALIDOMIDE
     Dates: start: 20210802, end: 20210808
  7. BENDAMUSTINE [Suspect]
     Active Substance: BENDAMUSTINE
     Indication: Lymphoma transformation
     Dosage: 3RD LINE SYSTEMIC TREATMENT, R-BENDA
     Dates: start: 20120130, end: 20120412
  8. ETOPOSIDE [Suspect]
     Active Substance: ETOPOSIDE
  9. IFOSFAMIDE [Suspect]
     Active Substance: IFOSFAMIDE

REACTIONS (2)
  - Follicular lymphoma [Unknown]
  - Off label use [Unknown]
